FAERS Safety Report 5515452-3 (Version None)
Quarter: 2007Q4

REPORT INFORMATION
  Report Type: 
  Country: None (occurrence: None)
  Receive Date: 20071113
  Receipt Date: 20070220
  Transmission Date: 20080405
  Serious: No
  Sender: FDA-Public Use
  Company Number: A0640275A

PATIENT
  Age: 75 Year
  Sex: Female

DRUGS (6)
  1. COREG [Suspect]
     Dosage: 3.125MG TWICE PER DAY
     Route: 048
  2. DIOVAN [Concomitant]
  3. CRESTOR [Concomitant]
  4. ACTONEL [Concomitant]
  5. NITROLINGUAL [Concomitant]
  6. ASPIRIN [Concomitant]

REACTIONS (1)
  - ALOPECIA [None]
